FAERS Safety Report 7457975-6 (Version None)
Quarter: 2011Q1

REPORT INFORMATION
  Report Type: 
  Country: None (occurrence: None)
  Receive Date: 20110302
  Receipt Date: 20100902
  Transmission Date: 20110831
  Serious: Yes (Death)
  Sender: FDA-Public Use
  Company Number: 163-21880-10090495

PATIENT
  Age: 82 Year
  Sex: Female

DRUGS (10)
  1. REVLIMID [Suspect]
     Indication: MYELODYSPLASTIC SYNDROME
     Dosage: 2.5 MG, 1 IN 2 D, PO
     Route: 048
     Dates: start: 20090301, end: 20090901
  2. POTASSIUM (POTASSIUM) [Concomitant]
  3. SINEMET [Concomitant]
  4. COLACE (DOCUSATE SODIUM) [Concomitant]
  5. LEVOTHROID [Concomitant]
  6. LACTULOSE [Concomitant]
  7. HYDRALAZINE HCL [Concomitant]
  8. DILTIAZEM [Concomitant]
  9. MULTIVITAMIN [Concomitant]
  10. FUROSEMIDE [Concomitant]

REACTIONS (1)
  - DEATH [None]
